FAERS Safety Report 18382573 (Version 1)
Quarter: 2020Q4

REPORT INFORMATION
  Report Type: Spontaneous
  Country: US (occurrence: US)
  Receive Date: 20201008
  Receipt Date: 20201008
  Transmission Date: 20210114
  Serious: Yes (Other)
  Sender: FDA-Public Use
  Company Number: None

PATIENT
  Age: 60 Year
  Sex: Female
  Weight: 100 kg

DRUGS (1)
  1. MOXIFLOXACIN OPHTHALMIC INJECTABLE SOLUTION [Suspect]
     Active Substance: MOXIFLOXACIN
     Dosage: OTHER FREQUENCY:ONCE FOR SURGERY;?
     Route: 047

REACTIONS (1)
  - Corneal opacity [None]

NARRATIVE: CASE EVENT DATE: 20201002
